FAERS Safety Report 9056485 (Version 1)
Quarter: 2013Q1

REPORT INFORMATION
  Report Type: Spontaneous
  Country: US (occurrence: US)
  Receive Date: 20130204
  Receipt Date: 20130204
  Transmission Date: 20140127
  Serious: No
  Sender: FDA-Public Use
  Company Number: US-PFIZER INC-2013039863

PATIENT
  Age: 54 Year
  Sex: Female
  Weight: 47.62 kg

DRUGS (10)
  1. XELJANZ [Suspect]
     Indication: RHEUMATOID ARTHRITIS
     Dosage: 5 MG, 2X/DAY
     Dates: start: 201212
  2. NEXIUM [Suspect]
     Indication: DYSPEPSIA
     Dosage: UNK
  3. NEXIUM [Suspect]
     Indication: ABDOMINAL PAIN UPPER
  4. PRILOSEC [Suspect]
     Indication: DYSPEPSIA
     Dosage: UNK
  5. PRILOSEC [Suspect]
     Indication: ABDOMINAL PAIN UPPER
  6. MAALOX [Suspect]
     Indication: DYSPEPSIA
     Dosage: UNK
  7. MAALOX [Suspect]
     Indication: ABDOMINAL PAIN UPPER
  8. DECITABINE [Suspect]
     Dosage: UNK
  9. HYDROCODONE [Concomitant]
     Indication: PAIN
     Dosage: 7.5 MG, 2 TO3 TIMES A DAY
  10. SYNTHROID [Concomitant]
     Indication: THYROID DISORDER
     Dosage: 100 UG, DAILY

REACTIONS (7)
  - Hypertension [Unknown]
  - Dry mouth [Not Recovered/Not Resolved]
  - Dysphagia [Not Recovered/Not Resolved]
  - Abdominal pain upper [Not Recovered/Not Resolved]
  - Dyspepsia [Not Recovered/Not Resolved]
  - Nausea [Not Recovered/Not Resolved]
  - Drug ineffective [Unknown]
